FAERS Safety Report 18760339 (Version 2)
Quarter: 2021Q1

REPORT INFORMATION
  Report Type: Spontaneous
  Country: JP (occurrence: JP)
  Receive Date: 20210119
  Receipt Date: 20210122
  Transmission Date: 20210419
  Serious: No
  Sender: FDA-Public Use
  Company Number: JP-ALLERGAN-2103023US

PATIENT
  Age: 44 Year
  Sex: Male

DRUGS (3)
  1. ASENAPINE MALEATE ? BP [Suspect]
     Active Substance: ASENAPINE MALEATE
     Indication: BIPOLAR I DISORDER
     Dosage: 20 MG
     Route: 060
  2. BLONANSERIN [Concomitant]
     Active Substance: BLONANSERIN
     Dosage: 8 MG
  3. CHLORPROMAZINE HYDROCHLORIDE. [Concomitant]
     Active Substance: CHLORPROMAZINE HYDROCHLORIDE
     Dosage: 400 MG

REACTIONS (2)
  - Hypotension [Recovered/Resolved]
  - Thymoma [Unknown]
